FAERS Safety Report 24676961 (Version 1)
Quarter: 2024Q4

REPORT INFORMATION
  Report Type: Spontaneous
  Country: CN (occurrence: CN)
  Receive Date: 20241128
  Receipt Date: 20241128
  Transmission Date: 20250115
  Serious: Yes (Other)
  Sender: STRIDES
  Company Number: CN-STRIDES ARCOLAB LIMITED-2024SP015618

PATIENT
  Age: 37 Year
  Sex: Female

DRUGS (8)
  1. LETROZOLE [Suspect]
     Active Substance: LETROZOLE
     Indication: Hormone receptor positive HER2 negative breast cancer
     Dosage: UNK
     Route: 065
  2. LETROZOLE [Suspect]
     Active Substance: LETROZOLE
     Indication: Breast cancer metastatic
  3. ABEMACICLIB [Suspect]
     Active Substance: ABEMACICLIB
     Indication: Hormone receptor positive HER2 negative breast cancer
     Dosage: UNK
     Route: 065
  4. ABEMACICLIB [Suspect]
     Active Substance: ABEMACICLIB
     Indication: Breast cancer metastatic
     Dosage: 150 MILLIGRAM, BID
     Route: 065
  5. GOSERELIN [Concomitant]
     Active Substance: GOSERELIN
     Indication: Hormone receptor positive HER2 negative breast cancer
     Dosage: UNK
     Route: 065
  6. GOSERELIN [Concomitant]
     Active Substance: GOSERELIN
     Indication: Breast cancer metastatic
  7. DENOSUMAB [Concomitant]
     Active Substance: DENOSUMAB
     Indication: Hormone receptor positive HER2 negative breast cancer
     Dosage: UNK
     Route: 065
  8. DENOSUMAB [Concomitant]
     Active Substance: DENOSUMAB
     Indication: Breast cancer metastatic

REACTIONS (1)
  - Neutropenia [Unknown]
